FAERS Safety Report 6958771-6 (Version None)
Quarter: 2010Q3

REPORT INFORMATION
  Report Type: 
  Country: None (occurrence: None)
  Receive Date: 20100831
  Receipt Date: 20100819
  Transmission Date: 20110219
  Serious: Yes (Hospitalization, Other)
  Sender: FDA-Public Use
  Company Number: PHHY2010CA53823

PATIENT
  Sex: Male
  Weight: 98 kg

DRUGS (5)
  1. CLOZARIL [Suspect]
     Indication: SCHIZOAFFECTIVE DISORDER
     Dosage: UNK
     Dates: start: 20100722, end: 20100807
  2. CLOPIXOL [Concomitant]
     Dosage: 200 MG
     Dates: end: 20100722
  3. HALDOL [Concomitant]
     Dosage: 5-10 MG
  4. ATIVAN [Concomitant]
     Dosage: 2-4 MG
  5. COGENTIN [Concomitant]
     Dosage: 2 MG

REACTIONS (16)
  - BLOOD CREATINE PHOSPHOKINASE INCREASED [None]
  - BRADYCARDIA [None]
  - CHILLS [None]
  - ELECTROCARDIOGRAM ST-T CHANGE [None]
  - FATIGUE [None]
  - GRIMACING [None]
  - LEFT VENTRICULAR DYSFUNCTION [None]
  - LEFT VENTRICULAR HYPERTROPHY [None]
  - LYMPHOCYTE COUNT DECREASED [None]
  - MITRAL VALVE INCOMPETENCE [None]
  - MYALGIA [None]
  - MYOCARDITIS [None]
  - PLATELET COUNT DECREASED [None]
  - PYREXIA [None]
  - TACHYCARDIA [None]
  - TROPONIN I INCREASED [None]
